FAERS Safety Report 17746437 (Version 6)
Quarter: 2021Q2

REPORT INFORMATION
  Report Type: Report from Study
  Country: DE (occurrence: DE)
  Receive Date: 20200505
  Receipt Date: 20210601
  Transmission Date: 20210716
  Serious: Yes (Hospitalization, Other)
  Sender: FDA-Public Use
  Company Number: DE-SHIRE-DE202014985

PATIENT
  Age: 23 Year
  Sex: Male
  Weight: 54 kg

DRUGS (24)
  1. TEDUGLUTIDE [Suspect]
     Active Substance: TEDUGLUTIDE
     Indication: SHORT-BOWEL SYNDROME
     Dosage: 0.26 MILLILITER, 1X/DAY:QD
     Route: 058
     Dates: start: 20200309, end: 20200312
  2. TEDUGLUTIDE [Suspect]
     Active Substance: TEDUGLUTIDE
     Dosage: 0.26 MILLILITER, 1X/DAY:QD
     Route: 058
     Dates: start: 20200516
  3. TEDUGLUTIDE [Suspect]
     Active Substance: TEDUGLUTIDE
     Dosage: 0.26 MILLILITER, 1X/DAY:QD
     Route: 058
     Dates: start: 20200516
  4. TEDUGLUTIDE [Suspect]
     Active Substance: TEDUGLUTIDE
     Dosage: 2.8 MILLIGRAM (0.05 MG/KG DAILY DOSE, 7 DOSES PER WEEK), OTHER
     Route: 065
     Dates: start: 20200309, end: 20200320
  5. TEDUGLUTIDE [Suspect]
     Active Substance: TEDUGLUTIDE
     Dosage: 2.8 MILLIGRAM (0.05 MG/KG DAILY DOSE, 7 DOSES PER WEEK), OTHER
     Route: 065
     Dates: start: 20200423
  6. TEDUGLUTIDE [Suspect]
     Active Substance: TEDUGLUTIDE
     Dosage: 2.8 MILLIGRAM (0.05 MG/KG DAILY DOSE, 7 DOSES PER WEEK), OTHER
     Route: 065
     Dates: start: 20200423
  7. TEDUGLUTIDE [Suspect]
     Active Substance: TEDUGLUTIDE
     Indication: SHORT-BOWEL SYNDROME
     Dosage: 0.26 MILLILITER, 1X/DAY:QD
     Route: 058
     Dates: start: 20200309, end: 20200312
  8. TEDUGLUTIDE [Suspect]
     Active Substance: TEDUGLUTIDE
     Dosage: 2.8 MILLIGRAM (0.05 MG/KG DAILY DOSE, 7 DOSES PER WEEK), OTHER
     Route: 065
     Dates: start: 20200423
  9. TEDUGLUTIDE [Suspect]
     Active Substance: TEDUGLUTIDE
     Dosage: 2.8 MILLIGRAM (0.05 MG/KG DAILY DOSE, 7 DOSES PER WEEK), OTHER
     Route: 065
     Dates: start: 20201208
  10. ZOLPIDEM [Concomitant]
     Active Substance: ZOLPIDEM TARTRATE
  11. TEDUGLUTIDE [Suspect]
     Active Substance: TEDUGLUTIDE
     Dosage: 2.8 MILLIGRAM (0.05 MG/KG DAILY DOSE, 7 DOSES PER WEEK), OTHER
     Route: 065
     Dates: start: 20200309, end: 20200320
  12. TEDUGLUTIDE [Suspect]
     Active Substance: TEDUGLUTIDE
     Dosage: 2.8 MILLIGRAM (0.05 MG/KG DAILY DOSE, 7 DOSES PER WEEK), OTHER
     Route: 065
     Dates: start: 20201208
  13. TEDUGLUTIDE [Suspect]
     Active Substance: TEDUGLUTIDE
     Dosage: 2.8 MILLIGRAM (0.05 MG/KG DAILY DOSE, 7 DOSES PER WEEK), OTHER
     Route: 065
     Dates: start: 20201208
  14. CETIRIZIN [Concomitant]
     Active Substance: CETIRIZINE HYDROCHLORIDE
     Indication: ANTIALLERGIC THERAPY
     Dosage: UNK, BID
     Route: 048
  15. TEDUGLUTIDE [Suspect]
     Active Substance: TEDUGLUTIDE
     Indication: SHORT-BOWEL SYNDROME
     Dosage: 0.26 MILLILITER, 1X/DAY:QD
     Route: 058
     Dates: start: 20200309, end: 20200312
  16. ZINC. [Concomitant]
     Active Substance: ZINC
     Indication: ZINC DEFICIENCY
     Dosage: 1 DOSAGE FORM, QD
     Route: 048
     Dates: start: 201912
  17. TEDUGLUTIDE [Suspect]
     Active Substance: TEDUGLUTIDE
     Dosage: 2.8 MILLIGRAM (0.05 MG/KG DAILY DOSE, 7 DOSES PER WEEK), OTHER
     Route: 065
     Dates: start: 20200423
  18. TEDUGLUTIDE [Suspect]
     Active Substance: TEDUGLUTIDE
     Dosage: 0.26 MILLILITER, 1X/DAY:QD
     Route: 058
     Dates: start: 20200516
  19. TEDUGLUTIDE [Suspect]
     Active Substance: TEDUGLUTIDE
     Dosage: 0.26 MILLILITER, 1X/DAY:QD
     Route: 058
     Dates: start: 20200516
  20. TEDUGLUTIDE [Suspect]
     Active Substance: TEDUGLUTIDE
     Dosage: 2.8 MILLIGRAM (0.05 MG/KG DAILY DOSE, 7 DOSES PER WEEK), OTHER
     Route: 065
     Dates: start: 20200309, end: 20200320
  21. TEDUGLUTIDE [Suspect]
     Active Substance: TEDUGLUTIDE
     Dosage: 2.8 MILLIGRAM (0.05 MG/KG DAILY DOSE, 7 DOSES PER WEEK), OTHER
     Route: 065
     Dates: start: 20201208
  22. TEDUGLUTIDE [Suspect]
     Active Substance: TEDUGLUTIDE
     Indication: SHORT-BOWEL SYNDROME
     Dosage: 0.26 MILLILITER, 1X/DAY:QD
     Route: 058
     Dates: start: 20200309, end: 20200312
  23. TEDUGLUTIDE [Suspect]
     Active Substance: TEDUGLUTIDE
     Dosage: 2.8 MILLIGRAM (0.05 MG/KG DAILY DOSE, 7 DOSES PER WEEK), OTHER
     Route: 065
     Dates: start: 20200309, end: 20200320
  24. INFLIXIMAB [Concomitant]
     Active Substance: INFLIXIMAB
     Indication: CROHN^S DISEASE
     Dosage: 300 MILLIGRAM, Q8WEEKS
     Route: 042
     Dates: start: 202001

REACTIONS (21)
  - Hepatosplenomegaly [Unknown]
  - Granuloma [Unknown]
  - Muscle spasms [Unknown]
  - Arthralgia [Unknown]
  - Splenomegaly [Unknown]
  - Headache [Unknown]
  - Chest pain [Recovered/Resolved]
  - Flank pain [Recovered/Resolved]
  - Disturbance in attention [Unknown]
  - Impaired healing [Unknown]
  - Fatigue [Unknown]
  - Device related infection [Not Recovered/Not Resolved]
  - Cholecystitis [Recovered/Resolved]
  - Mood altered [Unknown]
  - Liver disorder [Unknown]
  - Breast pain [Unknown]
  - Catheter site pain [Recovered/Resolved]
  - Abdominal pain upper [Unknown]
  - Stoma site inflammation [Unknown]
  - Iron deficiency [Not Recovered/Not Resolved]
  - Decreased appetite [Not Recovered/Not Resolved]

NARRATIVE: CASE EVENT DATE: 20200310
